FAERS Safety Report 8932485 (Version 1)
Quarter: 2012Q4

REPORT INFORMATION
  Report Type: Spontaneous
  Country: US (occurrence: None)
  Receive Date: 20121126
  Receipt Date: 20121126
  Transmission Date: 20130627
  Serious: Yes (Hospitalization)
  Sender: FDA-Public Use
  Company Number: None

PATIENT
  Age: 36 Year
  Sex: Female
  Weight: 141.84 kg

DRUGS (2)
  1. TOPIRAMATE [Suspect]
     Indication: MIGRAINE PROPHYLAXIS
     Route: 048
  2. IBUPROFEN [Concomitant]

REACTIONS (15)
  - Muscle spasms [None]
  - Cerebral palsy [None]
  - Abdominal pain [None]
  - Back pain [None]
  - Flank pain [None]
  - Musculoskeletal pain [None]
  - Constipation [None]
  - Vomiting [None]
  - Muscle spasms [None]
  - Anxiety [None]
  - Pain [None]
  - Muscle spasticity [None]
  - Abdominal pain upper [None]
  - Panic attack [None]
  - Condition aggravated [None]
